FAERS Safety Report 9496681 (Version 2)
Quarter: 2014Q2

REPORT INFORMATION
  Report Type: Spontaneous
  Country: FR (occurrence: FR)
  Receive Date: 20130904
  Receipt Date: 20140407
  Transmission Date: 20141212
  Serious: Yes (Hospitalization)
  Sender: FDA-Public Use
  Company Number: PHHY2013FR095289

PATIENT
  Age: 25 Year
  Sex: Female
  Weight: 134.8 kg

DRUGS (1)
  1. AMOXICILLIN SODIUM+POTASSIUM CLAVULANATE SANDOZ [Suspect]
     Indication: ANTIBIOTIC PROPHYLAXIS
     Dosage: 6 G, QD
     Route: 042
     Dates: start: 20130701, end: 20130701

REACTIONS (1)
  - Renal failure acute [Recovered/Resolved]
